FAERS Safety Report 5101896-0 (Version None)
Quarter: 2006Q3

REPORT INFORMATION
  Report Type: 
  Country: None (occurrence: None)
  Receive Date: 20060907
  Receipt Date: 20060818
  Transmission Date: 20061208
  Serious: Yes (Hospitalization)
  Sender: FDA-Public Use
  Company Number: USA0510111024

PATIENT
  Age: 54 Year
  Sex: Female

DRUGS (5)
  1. CYMBALTA [Suspect]
     Indication: DEPRESSION
     Dosage: 30 MG, ORAL
     Route: 048
  2. ALTACE [Concomitant]
  3. COREG [Concomitant]
  4. LASIX (FUROSEMIDE, FUROSEMIDE SODIUM) [Concomitant]
  5. POTASSIUM CHLORIDE [Concomitant]

REACTIONS (5)
  - FALL [None]
  - IMPAIRED WORK ABILITY [None]
  - LOWER LIMB FRACTURE [None]
  - ORTHOSTATIC HYPOTENSION [None]
  - PAIN IN EXTREMITY [None]
